FAERS Safety Report 22635303 (Version 1)
Quarter: 2023Q2

REPORT INFORMATION
  Report Type: Spontaneous
  Country: CA (occurrence: CA)
  Receive Date: 20230623
  Receipt Date: 20230623
  Transmission Date: 20230722
  Serious: Yes (Other)
  Sender: FDA-Public Use
  Company Number: CA-PFIZER INC-202300227551

PATIENT
  Age: 76 Year
  Sex: Female

DRUGS (5)
  1. RUXIENCE [Suspect]
     Active Substance: RITUXIMAB-PVVR
     Indication: Rheumatoid arthritis
     Dosage: 1000 MG, DAY 1 AND DAY 15
     Route: 042
     Dates: start: 20211021, end: 20211103
  2. RUXIENCE [Suspect]
     Active Substance: RITUXIMAB-PVVR
     Dosage: 1000 MG, DAY 1 AND DAY 15
     Route: 042
     Dates: start: 20230110, end: 20230125
  3. BOTOX [Concomitant]
     Active Substance: ONABOTULINUMTOXINA
     Dosage: UNK
  4. METOPROLOL [Concomitant]
     Active Substance: METOPROLOL
     Dosage: UNK
  5. SULFASALAZINE [Concomitant]
     Active Substance: SULFASALAZINE
     Dosage: 1 DF, DOSAGE INFO:  NOT PROVIDED.
     Route: 065

REACTIONS (1)
  - Foot operation [Unknown]
